FAERS Safety Report 8169669-2 (Version None)
Quarter: 2012Q1

REPORT INFORMATION
  Report Type: 
  Country: None (occurrence: None)
  Receive Date: 20120228
  Receipt Date: 20120222
  Transmission Date: 20120608
  Serious: Yes (Hospitalization)
  Sender: FDA-Public Use
  Company Number: US-PFIZER INC-2012015547

PATIENT
  Sex: Female
  Weight: 61.224 kg

DRUGS (9)
  1. PRAVASTATIN [Concomitant]
     Dosage: 40 MG, UNK
  2. LOMOTIL [Concomitant]
     Indication: DIARRHOEA
     Dosage: UNK
  3. SUTENT [Suspect]
     Indication: NEOPLASM MALIGNANT
     Dosage: 25 MG, 1X/DAY, EVERY OTHER DAY FOR 4 WEEKS ON THEN 2 WEEKS OFF
     Route: 048
     Dates: start: 20070419
  4. QUESTRAN [Concomitant]
     Dosage: UNK
  5. LEVOTHYROXINE [Concomitant]
     Dosage: 80 UG, QD
  6. LETROZOLE [Concomitant]
     Dosage: 2.5 MG, QD
     Route: 048
  7. VITAMIN B6 [Concomitant]
     Dosage: 100 MG, UNK
  8. CALCIUM [Concomitant]
     Dosage: 500 MG, 2X/DAY
  9. POTASSIUM CHLORIDE [Concomitant]
     Dosage: 20 MEQ, QD

REACTIONS (5)
  - DIARRHOEA [None]
  - DRY SKIN [None]
  - FATIGUE [None]
  - DYSPNOEA [None]
  - HYPERTENSION [None]
